FAERS Safety Report 17318499 (Version 3)
Quarter: 2020Q3

REPORT INFORMATION
  Report Type: Spontaneous
  Country: US (occurrence: US)
  Receive Date: 20200124
  Receipt Date: 20200822
  Transmission Date: 20201102
  Serious: Yes (Hospitalization, Disabling)
  Sender: FDA-Public Use
  Company Number: US-ACTELION-A-US2020-200831

PATIENT
  Age: 77 Year
  Sex: Female

DRUGS (2)
  1. OPSUMIT [Suspect]
     Active Substance: MACITENTAN
     Indication: PULMONARY ARTERIAL HYPERTENSION
     Dosage: 10 MG, QD
     Route: 048
     Dates: start: 20181009
  2. CALCIUM CARBONATE. [Concomitant]
     Active Substance: CALCIUM CARBONATE

REACTIONS (5)
  - Stent placement [Unknown]
  - Myocardial infarction [Recovering/Resolving]
  - Dyspepsia [Unknown]
  - Dizziness [Unknown]
  - Pneumonia [Unknown]

NARRATIVE: CASE EVENT DATE: 20200618
